FAERS Safety Report 23821172 (Version 1)
Quarter: 2024Q2

REPORT INFORMATION
  Report Type: Other
  Country: CA (occurrence: None)
  Receive Date: 20240506
  Receipt Date: 20240506
  Transmission Date: 20240716
  Serious: Yes (Hospitalization, Other)
  Sender: FDA-Public Use
  Company Number: CA-ROCHE-3375461

PATIENT
  Age: 26 Year
  Sex: Female

DRUGS (4)
  1. OCREVUS [Suspect]
     Active Substance: OCRELIZUMAB
     Indication: Relapsing-remitting multiple sclerosis
     Dosage: MORE DOSAGE INFORMATION IS 300 MG AT DAY 0 AND 14, THEN 600 MG EVERY 6 MONTH
     Route: 042
     Dates: start: 20220614
  2. RUPATADINE [Concomitant]
     Active Substance: RUPATADINE
  3. XOLAIR [Concomitant]
     Active Substance: OMALIZUMAB
  4. METOPROLOL [Concomitant]
     Active Substance: METOPROLOL

REACTIONS (4)
  - Anaphylactic reaction [Not Recovered/Not Resolved]
  - Appendicitis [Recovered/Resolved with Sequelae]
  - Heart rate increased [Unknown]
  - Mastocytosis [Unknown]

NARRATIVE: CASE EVENT DATE: 20230401
